FAERS Safety Report 7486735-5 (Version None)
Quarter: 2011Q2

REPORT INFORMATION
  Report Type: 
  Country: None (occurrence: None)
  Receive Date: 20110517
  Receipt Date: 20100608
  Transmission Date: 20111010
  Serious: No
  Sender: FDA-Public Use
  Company Number: US-NOVEN-ALL1-2010-03255

PATIENT

DRUGS (2)
  1. DAYTRANA [Suspect]
     Dosage: 40 MG, 1X/DAY:QD (TWO 20 MG. PATCHES)
     Route: 062
     Dates: start: 20060101
  2. DAYTRANA [Suspect]
     Dosage: 20 MG, 1X/DAY:QD
     Route: 062
     Dates: start: 20060101, end: 20060101

REACTIONS (4)
  - PSYCHOMOTOR HYPERACTIVITY [None]
  - OVERDOSE [None]
  - OFF LABEL USE [None]
  - DRUG INEFFECTIVE [None]
